FAERS Safety Report 9031908 (Version 1)
Quarter: 2013Q1

REPORT INFORMATION
  Report Type: Other
  Country: GB (occurrence: GB)
  Receive Date: 20130125
  Receipt Date: 20130125
  Transmission Date: 20140127
  Serious: Yes (Hospitalization)
  Sender: FDA-Public Use
  Company Number: GB-BRISTOL-MYERS SQUIBB COMPANY-17288549

PATIENT
  Age: 76 Year
  Sex: Female

DRUGS (3)
  1. WARFARIN SODIUM [Suspect]
     Indication: ATRIAL FIBRILLATION
  2. AMOXICILLIN [Interacting]
     Indication: PNEUMONIA
  3. CLARITHROMYCIN [Interacting]
     Indication: PNEUMONIA

REACTIONS (3)
  - Abdominal wall haematoma [Recovered/Resolved]
  - Large intestinal obstruction [Recovered/Resolved]
  - Drug interaction [Unknown]
